FAERS Safety Report 9074745 (Version 2)
Quarter: 2013Q1

REPORT INFORMATION
  Report Type: Spontaneous
  Country: US (occurrence: US)
  Receive Date: 20130129
  Receipt Date: 20130222
  Transmission Date: 20140127
  Serious: Yes (Death, Hospitalization)
  Sender: FDA-Public Use
  Company Number: US-INCYTE CORPORATION-2013IN000150

PATIENT
  Sex: Female

DRUGS (4)
  1. JAKAFI [Suspect]
     Indication: ESSENTIAL THROMBOCYTHAEMIA
     Dosage: 10 MG, BID
     Route: 048
     Dates: start: 20121113
  2. JAKAFI [Suspect]
     Dosage: 10 MG, BID (VIA FEEDING TUBE)
     Route: 050
  3. SYNTHROID [Concomitant]
  4. ASPIRIN (E.C.) [Concomitant]
     Dosage: 81 MG, UNK

REACTIONS (3)
  - Death [Fatal]
  - Pneumonia [Unknown]
  - Cardiac failure [Unknown]
